FAERS Safety Report 5621737-2 (Version None)
Quarter: 2008Q1

REPORT INFORMATION
  Report Type: 
  Country: None (occurrence: None)
  Receive Date: 20080211
  Receipt Date: 20080129
  Transmission Date: 20080703
  Serious: Yes (Other)
  Sender: FDA-Public Use
  Company Number: PHHY2008JP01244

PATIENT
  Age: 19 Year

DRUGS (3)
  1. CARBAMAZEPINE [Suspect]
     Route: 048
  2. DEPAS [Concomitant]
     Route: 048
  3. EVE [Concomitant]
     Route: 048

REACTIONS (1)
  - HEMIPARESIS [None]
